FAERS Safety Report 6495336-7 (Version None)
Quarter: 2009Q4

REPORT INFORMATION
  Report Type: 
  Country: None (occurrence: None)
  Receive Date: 20091214
  Receipt Date: 20090616
  Transmission Date: 20100525
  Serious: No
  Sender: FDA-Public Use
  Company Number: US-BRISTOL-MYERS SQUIBB COMPANY-14648984

PATIENT
  Age: 56 Year
  Sex: Female
  Weight: 91 kg

DRUGS (3)
  1. ABILIFY [Suspect]
     Indication: MAJOR DEPRESSION
     Dosage: INITIAL DOSE:12NOV03(15MG) INCREASED TO 30MG ON 30NOV03, 29MAR07 5MG DECREASED TO 2.5MG
     Route: 048
     Dates: start: 20031112
  2. WELLBUTRIN [Concomitant]
  3. BLOOD PRESSURE MEDICATION [Concomitant]

REACTIONS (2)
  - BLOOD GLUCOSE INCREASED [None]
  - RENAL IMPAIRMENT [None]
